FAERS Safety Report 22093872 (Version 2)
Quarter: 2023Q2

REPORT INFORMATION
  Report Type: Spontaneous
  Country: AU (occurrence: AU)
  Receive Date: 20230314
  Receipt Date: 20230411
  Transmission Date: 20230721
  Serious: Yes (Other)
  Sender: FDA-Public Use
  Company Number: AU-BAXTER-2023BAX015233

PATIENT
  Sex: Male

DRUGS (7)
  1. DOXORUBICIN [Suspect]
     Active Substance: DOXORUBICIN
     Indication: Diffuse large B-cell lymphoma
     Dosage: UNK, AS PART OF 6 CYCLES OF R-CHOP CHEMOTHERAPY
     Route: 065
  2. CYCLOPHOSPHAMIDE [Suspect]
     Active Substance: CYCLOPHOSPHAMIDE
     Indication: Diffuse large B-cell lymphoma
     Dosage: UNK, AS PART OF 6 CYCLES OF R-CHOP CHEMOTHERAPY
     Route: 065
  3. RITUXIMAB [Suspect]
     Active Substance: RITUXIMAB
     Indication: Diffuse large B-cell lymphoma
     Dosage: UNK, AS PART OF 4 CYCLE OF CHEMOTHERAPY
     Route: 065
  4. RITUXIMAB [Suspect]
     Active Substance: RITUXIMAB
     Dosage: UNK, AS PART OF 6 CYCLES OF R-CHOP CHEMOTHERAPY
     Route: 065
  5. VINCRISTINE [Suspect]
     Active Substance: VINCRISTINE
     Indication: Diffuse large B-cell lymphoma
     Dosage: UNK, AS PART OF 6 CYCLES OF R-CHOP CHEMOTHERAPY
     Route: 065
  6. PREDNISONE [Suspect]
     Active Substance: PREDNISONE
     Indication: Diffuse large B-cell lymphoma
     Dosage: UNK, AS PART OF 6 CYCLES OF R-CHOP CHEMOTHERAPY
     Route: 065
  7. METHOTREXATE [Suspect]
     Active Substance: METHOTREXATE
     Indication: Diffuse large B-cell lymphoma
     Dosage: UNK, 4 CYCLES, HD (HIGH-DOSE)
     Route: 065

REACTIONS (3)
  - Diffuse large B-cell lymphoma recurrent [Unknown]
  - Central nervous system lymphoma [Unknown]
  - Disease recurrence [Unknown]
